FAERS Safety Report 13085154 (Version 1)
Quarter: 2017Q1

REPORT INFORMATION
  Report Type: Spontaneous
  Country: US (occurrence: US)
  Receive Date: 20170104
  Receipt Date: 20170104
  Transmission Date: 20170428
  Serious: Yes (Other)
  Sender: FDA-Public Use
  Company Number: US-PFIZER INC-2016595232

PATIENT
  Sex: Female

DRUGS (1)
  1. XELJANZ XR [Suspect]
     Active Substance: TOFACITINIB CITRATE
     Dosage: 11 MG, UNK

REACTIONS (21)
  - Musculoskeletal stiffness [Unknown]
  - Dry mouth [Unknown]
  - Dry eye [Unknown]
  - Peripheral swelling [Unknown]
  - Synovitis [Unknown]
  - Memory impairment [Unknown]
  - Headache [Unknown]
  - Paraesthesia [Unknown]
  - Arthralgia [Unknown]
  - Weight increased [Unknown]
  - Insomnia [Unknown]
  - Back pain [Unknown]
  - Butterfly rash [Unknown]
  - Dyspepsia [Unknown]
  - Gastric ulcer [Unknown]
  - Swelling [Unknown]
  - Fatigue [Unknown]
  - Pain in extremity [Unknown]
  - Neck pain [Unknown]
  - Muscle spasms [Unknown]
  - Hypoaesthesia [Unknown]
